FAERS Safety Report 17940598 (Version 3)
Quarter: 2021Q2

REPORT INFORMATION
  Report Type: Spontaneous
  Country: TN (occurrence: TN)
  Receive Date: 20200625
  Receipt Date: 20210420
  Transmission Date: 20210717
  Serious: Yes (Hospitalization, Other)
  Sender: FDA-Public Use
  Company Number: TN-SA-2020SA154985

PATIENT
  Age: 39 Year
  Sex: Female

DRUGS (5)
  1. OXYGEN. [Concomitant]
     Active Substance: OXYGEN
     Indication: COVID-19
     Dosage: UNK
     Dates: start: 202003
  2. PLAQUENIL [Suspect]
     Active Substance: HYDROXYCHLOROQUINE SULFATE
     Indication: COVID-19
     Dosage: 600 MG, QD
     Dates: start: 20200331, end: 2020
  3. OXYGEN. [Concomitant]
     Active Substance: OXYGEN
     Indication: SUPPLEMENTATION THERAPY
  4. PLAQUENIL [Suspect]
     Active Substance: HYDROXYCHLOROQUINE SULFATE
     Indication: PRODUCT USE IN UNAPPROVED INDICATION
  5. ENOXAPARIN SODIUM. [Suspect]
     Active Substance: ENOXAPARIN SODIUM
     Indication: COVID-19
     Dosage: UNK
     Dates: start: 20200331

REACTIONS (9)
  - Off label use [Unknown]
  - Pruritus [Recovering/Resolving]
  - Leukocytosis [Recovering/Resolving]
  - Acute generalised exanthematous pustulosis [Recovering/Resolving]
  - Eosinophilia [Recovering/Resolving]
  - Neutrophilia [Recovering/Resolving]
  - Erythema [Recovering/Resolving]
  - Skin plaque [Recovering/Resolving]
  - Pustule [Recovering/Resolving]

NARRATIVE: CASE EVENT DATE: 20200418
